FAERS Safety Report 24082803 (Version 1)
Quarter: 2024Q3

REPORT INFORMATION
  Report Type: Spontaneous
  Country: CA (occurrence: CA)
  Receive Date: 20240712
  Receipt Date: 20240712
  Transmission Date: 20241017
  Serious: Yes (Other)
  Sender: SANDOZ
  Company Number: CA-SANDOZ-SDZ2024CA064664

PATIENT
  Age: 6 Decade
  Sex: Female

DRUGS (10)
  1. CELECOXIB [Suspect]
     Active Substance: CELECOXIB
     Indication: Greater trochanteric pain syndrome
     Dosage: UNK UNK, BID
     Route: 048
  2. CELECOXIB [Suspect]
     Active Substance: CELECOXIB
     Indication: Pain in extremity
  3. DICLOFENAC [Suspect]
     Active Substance: DICLOFENAC
     Indication: Greater trochanteric pain syndrome
     Dosage: UNK UNK, TID
     Route: 061
  4. DICLOFENAC [Suspect]
     Active Substance: DICLOFENAC
     Indication: Pain in extremity
  5. GABAPENTIN [Suspect]
     Active Substance: GABAPENTIN
     Indication: Greater trochanteric pain syndrome
     Dosage: UNK, TID
     Route: 048
  6. GABAPENTIN [Suspect]
     Active Substance: GABAPENTIN
     Indication: Pain in extremity
  7. NAPROXEN [Suspect]
     Active Substance: NAPROXEN
     Indication: Greater trochanteric pain syndrome
     Dosage: UNK
     Route: 065
  8. NAPROXEN [Suspect]
     Active Substance: NAPROXEN
     Indication: Pain in extremity
  9. TRAMADOL [Suspect]
     Active Substance: TRAMADOL\TRAMADOL HYDROCHLORIDE
     Indication: Greater trochanteric pain syndrome
     Dosage: UNK
     Route: 065
  10. TRAMADOL [Suspect]
     Active Substance: TRAMADOL\TRAMADOL HYDROCHLORIDE
     Indication: Pain in extremity

REACTIONS (2)
  - Drug ineffective [Unknown]
  - Off label use [Unknown]
